FAERS Safety Report 4865231-5 (Version None)
Quarter: 2005Q4

REPORT INFORMATION
  Report Type: 
  Country: None (occurrence: None)
  Receive Date: 20051223
  Receipt Date: 20051220
  Transmission Date: 20060501
  Serious: Yes (Other)
  Sender: FDA-Public Use
  Company Number: GB-GLAXOSMITHKLINE-B0404453A

PATIENT
  Age: 35 Year
  Sex: Female

DRUGS (1)
  1. ZYBAN [Suspect]
     Dosage: 150MG PER DAY
     Route: 048
     Dates: start: 20050930, end: 20051003

REACTIONS (3)
  - DEMYELINATION [None]
  - HYPOAESTHESIA [None]
  - SENSORY DISTURBANCE [None]
